FAERS Safety Report 8218239-6 (Version None)
Quarter: 2012Q1

REPORT INFORMATION
  Report Type: 
  Country: None (occurrence: None)
  Receive Date: 20120316
  Receipt Date: 20120316
  Transmission Date: 20120608
  Serious: No
  Sender: FDA-Public Use
  Company Number: None

PATIENT
  Sex: Female

DRUGS (2)
  1. PEGASYS [Suspect]
     Dosage: 180MCG QW SQ
     Route: 058
     Dates: start: 20120214, end: 20120308
  2. RIBAVIRIN [Suspect]
     Dosage: 600MG BID PO
     Route: 048

REACTIONS (5)
  - NAUSEA [None]
  - VOMITING [None]
  - DIARRHOEA [None]
  - FATIGUE [None]
  - DEPRESSION [None]
